FAERS Safety Report 7610486-7 (Version None)
Quarter: 2011Q3

REPORT INFORMATION
  Report Type: 
  Country: None (occurrence: None)
  Receive Date: 20110715
  Receipt Date: 20091226
  Transmission Date: 20111222
  Serious: Yes (Hospitalization, Other)
  Sender: FDA-Public Use
  Company Number: US-BAYER-200943571NA

PATIENT
  Age: 55 Year
  Sex: Male
  Weight: 115 kg

DRUGS (18)
  1. TRASYLOL [Suspect]
     Indication: AORTIC DISSECTION
     Dosage: UNK
     Route: 042
     Dates: start: 20080225
  2. AMLODIPINE [Concomitant]
     Indication: HYPERTENSION
     Route: 048
  3. VANCOMYCIN [Concomitant]
     Dosage: 1.5 G, UNK
     Route: 042
     Dates: start: 20080225
  4. FENTANYL [Concomitant]
     Dosage: UNK
     Route: 042
     Dates: start: 20080225, end: 20080226
  5. MIDAZOLAM HCL [Concomitant]
     Dosage: 10 MG, UNK
     Route: 042
     Dates: start: 20080225, end: 20080226
  6. LASIX [Concomitant]
     Indication: SWELLING
     Dosage: 80 MG, BID, THEN 40 MG EVERY 12 HOURS
     Route: 042
     Dates: start: 20080224, end: 20080301
  7. HEPARIN [Concomitant]
     Dosage: 30000,15000,10000 UNITS
     Route: 042
     Dates: start: 20080225, end: 20080226
  8. FRESH FROZEN PLASMA [Concomitant]
     Dosage: 4 U, UNK
     Route: 042
     Dates: start: 20080225
  9. HYDRALAZINE HCL [Concomitant]
     Indication: HYPERTENSION
     Dosage: 50 MG, UNK
     Route: 048
  10. LOPRESSOR [Concomitant]
     Dosage: 25 MG, BID
     Route: 048
     Dates: start: 20080225
  11. METHYLPREDNISOLONE [Concomitant]
     Dosage: 150 MG, UNK
     Route: 042
     Dates: start: 20080225, end: 20080226
  12. THROMBIN LOCAL SOLUTION [Concomitant]
     Dosage: 45000 U, UNK
     Route: 061
     Dates: start: 20080225, end: 20080226
  13. MILRINONE [Concomitant]
     Dosage: 5 MG, UNK
     Route: 042
     Dates: start: 20080225, end: 20080226
  14. PLATELETS [Concomitant]
     Dosage: 5 U, UNK
     Route: 042
     Dates: start: 20080225
  15. TRASYLOL [Suspect]
     Indication: AORTIC SURGERY
  16. ACETYLSALICYLIC ACID SRT [Concomitant]
     Dosage: 325 MG, FIRST DOSE THEN 81 MG DAILY
     Route: 048
     Dates: start: 20080224
  17. PROTAMINE SULFATE [Concomitant]
     Dosage: 250 MG, UNK
     Route: 042
     Dates: start: 20080225, end: 20080226
  18. RED BLOOD CELLS [Concomitant]
     Dosage: 6 U, UNK
     Route: 042
     Dates: start: 20080225

REACTIONS (6)
  - EMOTIONAL DISTRESS [None]
  - INJURY [None]
  - PAIN [None]
  - UNEVALUABLE EVENT [None]
  - RENAL FAILURE [None]
  - ANXIETY [None]
